FAERS Safety Report 6715441-7 (Version None)
Quarter: 2010Q2

REPORT INFORMATION
  Report Type: 
  Country: None (occurrence: None)
  Receive Date: 20100507
  Receipt Date: 20100504
  Transmission Date: 20101027
  Serious: Yes (Life-Threatening)
  Sender: FDA-Public Use
  Company Number: US-ASTRAZENECA-2010SE20111

PATIENT
  Age: 19 Year
  Sex: Female
  Weight: 70 kg

DRUGS (5)
  1. PROPOFOL [Suspect]
     Indication: INDUCTION OF ANAESTHESIA
     Route: 042
  2. FENTANYL [Suspect]
     Indication: INDUCTION OF ANAESTHESIA
     Route: 042
  3. MIDAZOLAM HCL [Concomitant]
     Indication: INDUCTION OF ANAESTHESIA
     Route: 042
  4. SEVOFLURANE [Concomitant]
     Indication: GENERAL ANAESTHESIA
  5. SUCCINYLCHOLINE [Concomitant]
     Dosage: 60 MGX1

REACTIONS (1)
  - CARDIAC FAILURE ACUTE [None]
